FAERS Safety Report 20416609 (Version 1)
Quarter: 2022Q1

REPORT INFORMATION
  Report Type: Spontaneous
  Country: CA (occurrence: CA)
  Receive Date: 20220202
  Receipt Date: 20220202
  Transmission Date: 20220423
  Serious: Yes (Other)
  Sender: FDA-Public Use
  Company Number: CA-INCYTE CORPORATION-2022IN000683

PATIENT

DRUGS (1)
  1. PEMAZYRE [Suspect]
     Active Substance: PEMIGATINIB
     Indication: Cholangiocarcinoma
     Dosage: UNK
     Route: 065

REACTIONS (8)
  - Pneumonia [Unknown]
  - COVID-19 [Unknown]
  - Rash pruritic [Unknown]
  - Varicose vein [Unknown]
  - Rash erythematous [Unknown]
  - Pruritus [Unknown]
  - Dry skin [Unknown]
  - Alopecia [Unknown]
